FAERS Safety Report 22027700 (Version 2)
Quarter: 2024Q1

REPORT INFORMATION
  Report Type: Spontaneous
  Country: US (occurrence: None)
  Receive Date: 20230223
  Receipt Date: 20240207
  Transmission Date: 20240409
  Serious: No
  Sender: FDA-Public Use
  Company Number: US-ROCHE-3239573

PATIENT
  Age: 21 Year
  Sex: Female
  Weight: 57.658 kg

DRUGS (1)
  1. XOLAIR [Suspect]
     Active Substance: OMALIZUMAB
     Indication: Urticaria
     Route: 065
     Dates: start: 20190730

REACTIONS (3)
  - Maternal exposure during pregnancy [Unknown]
  - Off label use [Unknown]
  - No adverse event [Unknown]
